FAERS Safety Report 10735317 (Version 1)
Quarter: 2015Q1

REPORT INFORMATION
  Report Type: Spontaneous
  Country: US (occurrence: US)
  Receive Date: 20150125
  Receipt Date: 20150125
  Transmission Date: 20150721
  Serious: Yes (Hospitalization)
  Sender: FDA-Public Use
  Company Number: US-JNJFOC-20150108186

PATIENT
  Age: 54 Year
  Sex: Female

DRUGS (2)
  1. APAP [Suspect]
     Active Substance: ACETAMINOPHEN
     Route: 048
  2. APAP [Suspect]
     Active Substance: ACETAMINOPHEN
     Indication: PRODUCT USED FOR UNKNOWN INDICATION
     Dosage: 3-4 TIMES A DAY
     Route: 048

REACTIONS (7)
  - Accidental overdose [Recovering/Resolving]
  - Abdominal pain upper [Recovering/Resolving]
  - Blood creatinine increased [Recovering/Resolving]
  - Hypotension [Unknown]
  - Oliguria [Recovering/Resolving]
  - Haematuria [Recovering/Resolving]
  - Liver function test abnormal [Recovering/Resolving]

NARRATIVE: CASE EVENT DATE: 20050925
